FAERS Safety Report 11314354 (Version 2)
Quarter: 2015Q3

REPORT INFORMATION
  Report Type: Spontaneous
  Country: US (occurrence: US)
  Receive Date: 20150727
  Receipt Date: 20150807
  Transmission Date: 20151125
  Serious: Yes (Death, Other)
  Sender: FDA-Public Use
  Company Number: US-PFIZER INC-2015245073

PATIENT
  Age: 71 Year
  Sex: Male

DRUGS (1)
  1. DILANTIN [Suspect]
     Active Substance: PHENYTOIN
     Indication: SEIZURE
     Dosage: 0.1 G, 3X/DAY

REACTIONS (3)
  - Drug hypersensitivity [Fatal]
  - Polyarteritis nodosa [Fatal]
  - Dermatitis exfoliative [Fatal]
